FAERS Safety Report 11663445 (Version 2)
Quarter: 2015Q4

REPORT INFORMATION
  Report Type: Spontaneous
  Country: US (occurrence: US)
  Receive Date: 20151027
  Receipt Date: 20151030
  Transmission Date: 20160304
  Serious: Yes (Hospitalization, Other)
  Sender: FDA-Public Use
  Company Number: US-PFIZER INC-2015355950

PATIENT
  Age: 58 Year
  Sex: Female
  Weight: 61 kg

DRUGS (14)
  1. ATORVASTATIN [Concomitant]
     Active Substance: ATORVASTATIN
     Indication: BLOOD CHOLESTEROL ABNORMAL
     Dosage: UNK
  2. NEURONTIN [Interacting]
     Active Substance: GABAPENTIN
     Indication: JOINT INJURY
     Dosage: UNK
  3. TYLENOL WITH CODEINE [Interacting]
     Active Substance: ACETAMINOPHEN\CODEINE PHOSPHATE
     Indication: ARTHRALGIA
  4. GABAPENTIN. [Suspect]
     Active Substance: GABAPENTIN
     Indication: HYPOAESTHESIA
     Dosage: 200 MG, ONCE OR TWICE A DAY
     Route: 048
     Dates: start: 2006
  5. LYRICA [Interacting]
     Active Substance: PREGABALIN
     Indication: HYPOAESTHESIA
     Dosage: 25MG-75MG ONCE OR TWICE A DAY
     Route: 048
     Dates: start: 2006
  6. LITHIUM. [Concomitant]
     Active Substance: LITHIUM
     Dosage: UNK
     Dates: start: 2009
  7. NEURONTIN [Interacting]
     Active Substance: GABAPENTIN
     Indication: HYPOAESTHESIA
     Dosage: UNK
     Dates: start: 201509
  8. CODEINE [Interacting]
     Active Substance: CODEINE
     Dosage: UNK
  9. TYLENOL WITH CODEINE [Interacting]
     Active Substance: ACETAMINOPHEN\CODEINE PHOSPHATE
     Indication: PAIN
     Dosage: UNK
     Dates: start: 20120613
  10. GABAPENTIN. [Suspect]
     Active Substance: GABAPENTIN
     Indication: ARTHRALGIA
     Dosage: 100 MG, 2X/DAY
     Route: 048
  11. LYRICA [Interacting]
     Active Substance: PREGABALIN
     Dosage: 50-75MG, DAILY
     Route: 048
     Dates: start: 200901
  12. GABAPENTIN. [Suspect]
     Active Substance: GABAPENTIN
     Dosage: 200-400 HS
     Route: 048
     Dates: start: 20120224
  13. AMBIEN [Concomitant]
     Active Substance: ZOLPIDEM TARTRATE
     Indication: SLEEP DISORDER
     Dosage: 10 MG, 1X/DAY  (ONCE AT NIGHT)
  14. GABAPENTIN. [Suspect]
     Active Substance: GABAPENTIN
     Dosage: 200 TO 400MG PER DAY
     Route: 048
     Dates: start: 20120613

REACTIONS (8)
  - Product use issue [Unknown]
  - Drug ineffective [Not Recovered/Not Resolved]
  - Condition aggravated [Unknown]
  - Fall [Unknown]
  - Drug interaction [Unknown]
  - Feeling abnormal [Unknown]
  - Mania [Recovered/Resolved]
  - Cerebrovascular accident [Unknown]

NARRATIVE: CASE EVENT DATE: 20120613
